FAERS Safety Report 10699810 (Version 1)
Quarter: 2015Q1

REPORT INFORMATION
  Report Type: Spontaneous
  Country: US (occurrence: None)
  Receive Date: 20150108
  Receipt Date: 20150108
  Transmission Date: 20150721
  Serious: Yes (Hospitalization)
  Sender: FDA-Public Use
  Company Number: None

PATIENT
  Age: 50 Year
  Sex: Female
  Weight: 109 kg

DRUGS (1)
  1. PROLEUKIN [Suspect]
     Active Substance: ALDESLEUKIN
     Dosage: 69.684 MILLIUNIT
     Dates: end: 20140817

REACTIONS (11)
  - Blood creatinine increased [None]
  - Lipase increased [None]
  - Nausea [None]
  - Vomiting [None]
  - Urinary tract infection [None]
  - Hyperthyroidism [None]
  - Hypersomnia [None]
  - Confusional state [None]
  - Fatigue [None]
  - Blood urea abnormal [None]
  - Anxiety [None]

NARRATIVE: CASE EVENT DATE: 20140901
